FAERS Safety Report 15411942 (Version 2)
Quarter: 2019Q1

REPORT INFORMATION
  Report Type: Spontaneous
  Country: US (occurrence: US)
  Receive Date: 20180921
  Receipt Date: 20190221
  Transmission Date: 20190417
  Serious: Yes (Hospitalization)
  Sender: FDA-Public Use
  Company Number: US-JNJFOC-20180916154

PATIENT
  Age: 46 Year
  Sex: Female

DRUGS (2)
  1. XARELTO [Suspect]
     Active Substance: RIVAROXABAN
     Indication: DEEP VEIN THROMBOSIS
     Dosage: 15/20 MG
     Route: 048
     Dates: start: 20151109, end: 20160426
  2. XARELTO [Suspect]
     Active Substance: RIVAROXABAN
     Indication: PULMONARY EMBOLISM
     Dosage: 15/20 MG
     Route: 048
     Dates: start: 20151109, end: 20160426

REACTIONS (3)
  - Off label use [Unknown]
  - Haematemesis [Unknown]
  - Product use issue [Unknown]

NARRATIVE: CASE EVENT DATE: 20151109
